FAERS Safety Report 14380038 (Version 2)
Quarter: 2018Q1

REPORT INFORMATION
  Report Type: Spontaneous
  Country: US (occurrence: US)
  Receive Date: 20180112
  Receipt Date: 20180131
  Transmission Date: 20180509
  Serious: No
  Sender: FDA-Public Use
  Company Number: US-PFIZER INC-2018013785

PATIENT
  Age: 57 Year
  Sex: Female
  Weight: 63 kg

DRUGS (5)
  1. ANTIVERT [Concomitant]
     Active Substance: MECLIZINE HYDROCHLORIDE
     Dosage: UNK
     Dates: start: 20171108
  2. FASLODEX [Interacting]
     Active Substance: FULVESTRANT
     Indication: OESTROGEN RECEPTOR POSITIVE BREAST CANCER
     Dosage: 250 MG, MONTHLY (ONCE A MONTH)
     Dates: start: 201711
  3. MORPHINE SULFATE. [Concomitant]
     Active Substance: MORPHINE SULFATE
     Indication: BACK PAIN
     Dosage: UNK, AS NEEDED (1-2 TABLETS 4 TIMES A DAY)
     Dates: start: 201711
  4. XGEVA [Interacting]
     Active Substance: DENOSUMAB
     Indication: OESTROGEN RECEPTOR POSITIVE BREAST CANCER
     Dosage: UNK, ONCE A MONTH
     Dates: start: 201711
  5. IBRANCE [Suspect]
     Active Substance: PALBOCICLIB
     Indication: OESTROGEN RECEPTOR POSITIVE BREAST CANCER
     Dosage: 125 MG, CYCLIC (ONCE DAILY FOR 21 DAYS AND THEN 7 DAYS OFF)
     Dates: start: 20171108

REACTIONS (12)
  - Weight increased [Not Recovered/Not Resolved]
  - Axillary pain [Unknown]
  - Abdominal distension [Not Recovered/Not Resolved]
  - Constipation [Not Recovered/Not Resolved]
  - Drug interaction [Unknown]
  - Abdominal pain upper [Not Recovered/Not Resolved]
  - Back pain [Not Recovered/Not Resolved]
  - Muscle spasms [Not Recovered/Not Resolved]
  - Arthralgia [Not Recovered/Not Resolved]
  - Fatigue [Not Recovered/Not Resolved]
  - Pain in extremity [Not Recovered/Not Resolved]
  - Paraesthesia [Not Recovered/Not Resolved]

NARRATIVE: CASE EVENT DATE: 201711
